FAERS Safety Report 7784020-5 (Version None)
Quarter: 2011Q3

REPORT INFORMATION
  Report Type: 
  Country: None (occurrence: None)
  Receive Date: 20110928
  Receipt Date: 20110926
  Transmission Date: 20111222
  Serious: Yes (Hospitalization, Other)
  Sender: FDA-Public Use
  Company Number: US-MERCK-1104USA01700

PATIENT
  Age: 64 Year
  Sex: Female

DRUGS (6)
  1. ACTOS [Concomitant]
     Indication: DIABETES MELLITUS
     Route: 065
     Dates: start: 20071101, end: 20090501
  2. FOSAMAX [Suspect]
     Indication: RHEUMATOID ARTHRITIS
     Route: 048
  3. FOSAMAX [Suspect]
     Indication: OSTEOPOROSIS
     Route: 048
     Dates: start: 20070404, end: 20080122
  4. METFORMIN [Concomitant]
     Indication: DIABETES MELLITUS
     Route: 065
     Dates: start: 20020101, end: 20100101
  5. PREDNISONE [Concomitant]
     Indication: RHEUMATOID ARTHRITIS
     Route: 065
     Dates: start: 20041201
  6. LEFLUNOMIDE [Concomitant]
     Indication: RHEUMATOID ARTHRITIS
     Route: 065
     Dates: start: 20070401, end: 20081001

REACTIONS (6)
  - OSTEONECROSIS OF JAW [None]
  - APPENDICITIS PERFORATED [None]
  - EDENTULOUS [None]
  - OSTEOMYELITIS [None]
  - HYPERTENSION [None]
  - ARTHROPATHY [None]
